FAERS Safety Report 5020559-3 (Version None)
Quarter: 2006Q2

REPORT INFORMATION
  Report Type: 
  Country: None (occurrence: None)
  Receive Date: 20060602
  Receipt Date: 20060522
  Transmission Date: 20061013
  Serious: Yes (Hospitalization)
  Sender: FDA-Public Use
  Company Number: 2006BI007408

PATIENT
  Age: 56 Year
  Sex: Male
  Weight: 114.3065 kg

DRUGS (2)
  1. AVONEX [Suspect]
     Indication: MULTIPLE SCLEROSIS
     Dosage: 30 UG QW IM
     Route: 030
     Dates: start: 20020501, end: 20040101
  2. AVONEX [Suspect]
     Indication: MULTIPLE SCLEROSIS
     Dosage: 30 UG QW IM
     Route: 030
     Dates: start: 20040101

REACTIONS (6)
  - BALANCE DISORDER [None]
  - BODY HEIGHT DECREASED [None]
  - FALL [None]
  - MUSCLE SPASMS [None]
  - PAIN [None]
  - SKIN LESION [None]
